FAERS Safety Report 7027589-0 (Version None)
Quarter: 2010Q4

REPORT INFORMATION
  Report Type: 
  Country: None (occurrence: None)
  Receive Date: 20101004
  Receipt Date: 20100924
  Transmission Date: 20110411
  Serious: Yes (Other)
  Sender: FDA-Public Use
  Company Number: US-US-EMD SERONO, INC.-7019308

PATIENT
  Sex: Female

DRUGS (5)
  1. REBIF [Suspect]
     Indication: MULTIPLE SCLEROSIS
     Route: 058
     Dates: start: 20100319, end: 20100101
  2. REBIF [Suspect]
     Route: 058
     Dates: start: 20100501, end: 20100101
  3. REBIF [Suspect]
     Route: 058
     Dates: start: 20100101, end: 20100101
  4. REBIF [Suspect]
     Route: 058
     Dates: start: 20100701, end: 20100101
  5. REBIF [Suspect]
     Route: 058
     Dates: start: 20100101

REACTIONS (3)
  - DIPLOPIA [None]
  - INFECTIOUS MONONUCLEOSIS [None]
  - MIGRAINE [None]
